FAERS Safety Report 4960996-6 (Version None)
Quarter: 2006Q2

REPORT INFORMATION
  Report Type: 
  Country: None (occurrence: None)
  Receive Date: 20060403
  Receipt Date: 20060327
  Transmission Date: 20061013
  Serious: Yes (Hospitalization)
  Sender: FDA-Public Use
  Company Number: US-BRISTOL-MYERS SQUIBB COMPANY-13326913

PATIENT
  Age: 77 Year
  Sex: Female
  Weight: 48 kg

DRUGS (10)
  1. ERBITUX [Suspect]
     Indication: NON-SMALL CELL LUNG CANCER
     Dates: start: 20060323, end: 20060323
  2. NAVELBINE [Suspect]
     Dates: start: 20060323, end: 20060323
  3. MODURETIC 5-50 [Concomitant]
     Route: 048
  4. DIGOXIN [Concomitant]
     Route: 048
  5. ATENOLOL [Concomitant]
     Route: 048
  6. ECOTRIN [Concomitant]
     Route: 048
  7. EVISTA [Concomitant]
     Route: 048
  8. CITRACAL [Concomitant]
     Route: 048
  9. ASCORBIC ACID [Concomitant]
  10. VITAMIN E [Concomitant]

REACTIONS (1)
  - ENTERITIS [None]
